FAERS Safety Report 24665763 (Version 1)
Quarter: 2024Q4

REPORT INFORMATION
  Report Type: Spontaneous
  Country: FR (occurrence: FR)
  Receive Date: 20241126
  Receipt Date: 20241126
  Transmission Date: 20250114
  Serious: Yes (Other)
  Sender: MYLAN
  Company Number: None

PATIENT
  Age: 72 Year
  Sex: Male
  Weight: 54 kg

DRUGS (5)
  1. TAHOR [Interacting]
     Active Substance: ATORVASTATIN CALCIUM
     Indication: Hypercholesterolaemia
     Dosage: 1 DOSAGE FORM, QD
     Route: 048
     Dates: end: 202407
  2. CRESEMBA [Interacting]
     Active Substance: ISAVUCONAZONIUM SULFATE
     Indication: Bronchopulmonary aspergillosis
     Dosage: 6 DOSAGE FORM, QD
     Route: 048
     Dates: start: 20240723, end: 20240723
  3. CRESEMBA [Interacting]
     Active Substance: ISAVUCONAZONIUM SULFATE
     Dosage: 4 DOSAGE FORM, QD
     Route: 048
     Dates: start: 20240724, end: 20240724
  4. CRESEMBA [Interacting]
     Active Substance: ISAVUCONAZONIUM SULFATE
     Dosage: 2 DOSAGE FORM, QD
     Route: 048
     Dates: start: 20240724, end: 20240808
  5. CRESEMBA [Interacting]
     Active Substance: ISAVUCONAZONIUM SULFATE
     Dosage: 1 DOSAGE FORM, QD
     Route: 048
     Dates: start: 20240808

REACTIONS (3)
  - Drug level increased [Unknown]
  - Myalgia [Recovered/Resolved]
  - Drug interaction [Unknown]

NARRATIVE: CASE EVENT DATE: 20240808
